FAERS Safety Report 9645321 (Version 1)
Quarter: 2013Q4

REPORT INFORMATION
  Report Type: Spontaneous
  Country: US (occurrence: None)
  Receive Date: 20131023
  Receipt Date: 20131023
  Transmission Date: 20140711
  Serious: Yes (Death, Other)
  Sender: FDA-Public Use
  Company Number: ADR-2013-01902

PATIENT
  Sex: Female

DRUGS (3)
  1. BACLOFEN [Suspect]
  2. DILAUDID (2.0 MG/ML) [Suspect]
  3. BUPIVACAINE (30 MG/ML) [Suspect]

REACTIONS (1)
  - Insomnia [None]
